FAERS Safety Report 5337490-6 (Version None)
Quarter: 2007Q2

REPORT INFORMATION
  Report Type: 
  Country: None (occurrence: None)
  Receive Date: 20070524
  Receipt Date: 20070514
  Transmission Date: 20071010
  Serious: No
  Sender: FDA-Public Use
  Company Number: 2007-158602-NL

PATIENT
  Age: 39 Year
  Sex: Male

DRUGS (1)
  1. MIRTAZAPINE [Suspect]
     Indication: DEPRESSION
     Dosage: 30 MG QD, ORAL
     Route: 048
     Dates: start: 20070115

REACTIONS (1)
  - RENAL FAILURE [None]
